FAERS Safety Report 4805638-5 (Version None)
Quarter: 2005Q4

REPORT INFORMATION
  Report Type: 
  Country: None (occurrence: None)
  Receive Date: 20051021
  Receipt Date: 20031020
  Transmission Date: 20060501
  Serious: Yes (Other)
  Sender: FDA-Public Use
  Company Number: 2003UW13607

PATIENT
  Age: 58 Year
  Sex: Female
  Weight: 88.6 kg

DRUGS (9)
  1. SEROQUEL [Suspect]
     Route: 048
     Dates: start: 20030823, end: 20030823
  2. SERZONE [Suspect]
     Indication: DEPRESSION
     Dosage: 4-5 YEARS
     Route: 048
     Dates: start: 19990101
  3. SERZONE [Suspect]
     Route: 048
  4. PAXIL [Concomitant]
     Route: 048
  5. PAXIL [Concomitant]
     Route: 048
  6. PREMARIN [Concomitant]
  7. MULTI-VITAMIN [Concomitant]
  8. CALCIUM GLUCONATE [Concomitant]
  9. METAMUCIL [Concomitant]
     Dosage: 6AM  AND 6PM

REACTIONS (23)
  - ANXIETY [None]
  - ASTHENIA [None]
  - BALANCE DISORDER [None]
  - BRAIN DAMAGE [None]
  - BREAST CANCER FEMALE [None]
  - COGNITIVE DISORDER [None]
  - CONDITION AGGRAVATED [None]
  - CRYING [None]
  - DEPRESSION [None]
  - DIARRHOEA [None]
  - DYSPHASIA [None]
  - ENCEPHALOPATHY [None]
  - FATIGUE [None]
  - HEADACHE [None]
  - HYPERSOMNIA [None]
  - LETHARGY [None]
  - MEDICATION ERROR [None]
  - MEMORY IMPAIRMENT [None]
  - MUSCLE SPASMS [None]
  - MUSCLE TWITCHING [None]
  - SOCIAL AVOIDANT BEHAVIOUR [None]
  - SOMNOLENCE [None]
  - TREMOR [None]
